FAERS Safety Report 23206794 (Version 1)
Quarter: 2023Q4

REPORT INFORMATION
  Report Type: Spontaneous
  Country: US (occurrence: US)
  Receive Date: 20231120
  Receipt Date: 20231120
  Transmission Date: 20240110
  Serious: No
  Sender: FDA-Public Use
  Company Number: US-MYLANLABS-2023M1121374

PATIENT
  Sex: Male
  Weight: 53.07 kg

DRUGS (1)
  1. PROCTOFOAM HC [Suspect]
     Active Substance: HYDROCORTISONE ACETATE\PRAMOXINE HYDROCHLORIDE
     Indication: Proctitis
     Dosage: UNK (APPLIED 2-3 TIMES A DAY)
     Route: 054

REACTIONS (2)
  - Device difficult to use [Unknown]
  - Product quality issue [Unknown]
